FAERS Safety Report 25137604 (Version 1)
Quarter: 2025Q1

REPORT INFORMATION
  Report Type: Spontaneous
  Country: FR (occurrence: FR)
  Receive Date: 20250329
  Receipt Date: 20250329
  Transmission Date: 20250409
  Serious: Yes (Hospitalization, Other)
  Sender: AUROBINDO
  Company Number: FR-AFSSAPS-NC2025000371

PATIENT
  Age: 62 Year
  Sex: Female
  Weight: 62 kg

DRUGS (3)
  1. RAMIPRIL [Interacting]
     Active Substance: RAMIPRIL
     Indication: Hypertension
     Dosage: 2.5 MILLIGRAM, ONCE A DAY
     Route: 048
     Dates: start: 20210101, end: 20250208
  2. TERALITHE [Interacting]
     Active Substance: LITHIUM CARBONATE
     Indication: Bipolar disorder
     Dosage: 600 MILLIGRAM, ONCE A DAY
     Route: 048
     Dates: start: 20150101, end: 20250208
  3. FUROSEMIDE [Interacting]
     Active Substance: FUROSEMIDE
     Indication: Cardiac failure
     Dosage: 40 MILLIGRAM, ONCE A DAY
     Route: 048
     Dates: start: 20210101, end: 20250208

REACTIONS (2)
  - Acute kidney injury [Recovered/Resolved]
  - Hyponatraemia [Recovered/Resolved]

NARRATIVE: CASE EVENT DATE: 20250207
